FAERS Safety Report 8015484-X (Version None)
Quarter: 2011Q4

REPORT INFORMATION
  Report Type: 
  Country: None (occurrence: None)
  Receive Date: 20111227
  Receipt Date: 20111227
  Transmission Date: 20120403
  Serious: Yes (Hospitalization)
  Sender: FDA-Public Use
  Company Number: None

PATIENT
  Sex: Male
  Weight: 87 kg

DRUGS (5)
  1. PREDNISONE TAB [Suspect]
     Dosage: 400 MG
  2. RITUXIMAB (MOAB C2B8 ANTI CD20, CHIMERIC) [Suspect]
     Dosage: 720 MG
  3. VINCRISTINE SULFATE [Suspect]
     Dosage: 2 MG
  4. DOXORUBICIN HCL [Suspect]
     Dosage: 96 MG
  5. CYCLOPHOSPHAMIDE [Suspect]
     Dosage: 1440 MG

REACTIONS (11)
  - WHITE BLOOD CELL COUNT INCREASED [None]
  - CANDIDIASIS [None]
  - COLITIS [None]
  - FEBRILE NEUTROPENIA [None]
  - PNEUMOCYSTIS JIROVECI PNEUMONIA [None]
  - DEEP VEIN THROMBOSIS [None]
  - CLOSTRIDIAL INFECTION [None]
  - PNEUMOCYSTIS JIROVECI INFECTION [None]
  - CHILLS [None]
  - ASTHENIA [None]
  - PNEUMONIA [None]
